FAERS Safety Report 23931680 (Version 1)
Quarter: 2024Q2

REPORT INFORMATION
  Report Type: Spontaneous
  Country: US (occurrence: US)
  Receive Date: 20240603
  Receipt Date: 20240603
  Transmission Date: 20240716
  Serious: Yes (Hospitalization, Other)
  Sender: FDA-Public Use
  Company Number: US-ALEMBIC PHARMACUETICALS LIMITED-2024SCAL000720

PATIENT

DRUGS (1)
  1. BUPROPION HYDROCHLORIDE [Suspect]
     Active Substance: BUPROPION HYDROCHLORIDE
     Indication: Product used for unknown indication
     Dosage: UNK

REACTIONS (7)
  - Intentional product misuse [Unknown]
  - Wrong technique in product usage process [Unknown]
  - Acute myocardial infarction [Unknown]
  - Psychomotor hyperactivity [Unknown]
  - Dyspnoea [Unknown]
  - Sinus tachycardia [Unknown]
  - Troponin increased [Unknown]
